FAERS Safety Report 8006791 (Version 1)
Quarter: 2020Q3

REPORT INFORMATION
  Report Type: Report from Study
  Country: DE (occurrence: DE)
  Receive Date: 20110623
  Receipt Date: 20110623
  Transmission Date: 20201104
  Serious: Yes (Hospitalization)
  Sender: FDA-Public Use
  Company Number: DE-JNJFOC-20090305147

PATIENT
  Age: 45 Year
  Sex: Male
  Weight: 82 kg

DRUGS (16)
  1. CNTO 1275 [Suspect]
     Active Substance: USTEKINUMAB
     Indication: PSORIASIS
     Route: 058
     Dates: start: 20070212
  2. CNTO 1275 [Suspect]
     Active Substance: USTEKINUMAB
     Route: 058
     Dates: start: 20071119
  3. CNTO 1275 [Suspect]
     Active Substance: USTEKINUMAB
     Route: 058
     Dates: start: 20080929
  4. CNTO 1275 [Suspect]
     Active Substance: USTEKINUMAB
     Route: 058
     Dates: start: 20081124
  5. PLACEBO [Suspect]
     Active Substance: UNSPECIFIED INGREDIENT
     Route: 058
     Dates: start: 20060901
  6. CNTO 1275 [Suspect]
     Active Substance: USTEKINUMAB
     Route: 058
     Dates: start: 20070509
  7. CNTO 1275 [Suspect]
     Active Substance: USTEKINUMAB
     Route: 058
     Dates: start: 20061106
  8. CNTO 1275 [Suspect]
     Active Substance: USTEKINUMAB
     Route: 058
     Dates: start: 20080804
  9. PLACEBO [Suspect]
     Active Substance: UNSPECIFIED INGREDIENT
     Indication: PSORIASIS
     Route: 058
     Dates: start: 20060407
  10. CNTO 1275 [Suspect]
     Active Substance: USTEKINUMAB
     Route: 058
     Dates: start: 20080121
  11. CNTO 1275 [Suspect]
     Active Substance: USTEKINUMAB
     Route: 058
     Dates: start: 20061127
  12. CNTO 1275 [Suspect]
     Active Substance: USTEKINUMAB
     Route: 058
     Dates: start: 20090119
  13. CNTO 1275 [Suspect]
     Active Substance: USTEKINUMAB
     Route: 058
     Dates: start: 20090308
  14. CNTO 1275 [Suspect]
     Active Substance: USTEKINUMAB
     Route: 058
     Dates: start: 20070806
  15. CNTO 1275 [Suspect]
     Active Substance: USTEKINUMAB
     Route: 058
     Dates: start: 20080414
  16. CNTO 1275 [Suspect]
     Active Substance: USTEKINUMAB
     Route: 058
     Dates: start: 20080609

REACTIONS (1)
  - Diverticulitis [Recovered/Resolved]

NARRATIVE: CASE EVENT DATE: 20090220
